FAERS Safety Report 14086989 (Version 2)
Quarter: 2017Q4

REPORT INFORMATION
  Report Type: Report from Study
  Country: CA (occurrence: CA)
  Receive Date: 20171013
  Receipt Date: 20171017
  Transmission Date: 20180321
  Serious: Yes (Other)
  Sender: FDA-Public Use
  Company Number: CA-JNJFOC-20171001831

PATIENT
  Age: 19 Year
  Sex: Female
  Weight: 52.16 kg

DRUGS (1)
  1. SIMPONI [Suspect]
     Active Substance: GOLIMUMAB
     Indication: ANKYLOSING SPONDYLITIS
     Route: 058
     Dates: start: 20170817, end: 20171013

REACTIONS (4)
  - Ear infection [Recovering/Resolving]
  - Lower respiratory tract infection [Recovering/Resolving]
  - Poor quality sleep [Unknown]
  - Upper respiratory tract infection [Not Recovered/Not Resolved]

NARRATIVE: CASE EVENT DATE: 20170928
